FAERS Safety Report 12120177 (Version 1)
Quarter: 2016Q1

REPORT INFORMATION
  Report Type: Spontaneous
  Country: EG (occurrence: EG)
  Receive Date: 20160226
  Receipt Date: 20160226
  Transmission Date: 20160526
  Serious: Yes (Other)
  Sender: FDA-Public Use
  Company Number: EG-VERNALIS THERAPEUTICS, INC.-2016VRN00008

PATIENT

DRUGS (2)
  1. WARFARIN [Suspect]
     Active Substance: WARFARIN
     Dosage: UNK
  2. AMOXICILLIN CLAVULANATE [Suspect]
     Active Substance: AMOXICILLIN\CLAVULANIC ACID
     Indication: ENDOCARDITIS
     Dosage: 10 TO 12 G DAILY
     Route: 065

REACTIONS (3)
  - Drug interaction [Unknown]
  - Prescribed overdose [Unknown]
  - International normalised ratio increased [Unknown]
